FAERS Safety Report 6453587-1 (Version None)
Quarter: 2009Q4

REPORT INFORMATION
  Report Type: 
  Country: None (occurrence: None)
  Receive Date: 20091124
  Receipt Date: 20090513
  Transmission Date: 20100525
  Serious: No
  Sender: FDA-Public Use
  Company Number: US-AMGEN-COG342598

PATIENT
  Sex: Male
  Weight: 116.7 kg

DRUGS (3)
  1. ENBREL [Suspect]
     Indication: RHEUMATOID ARTHRITIS
     Route: 058
     Dates: start: 20080910, end: 20090401
  2. LEFLUNOMIDE [Concomitant]
     Dates: start: 20060101
  3. PREDNISONE [Concomitant]

REACTIONS (9)
  - ABSCESS [None]
  - ARTHRALGIA [None]
  - COUGH [None]
  - LOWER RESPIRATORY TRACT INFECTION [None]
  - MUSCULOSKELETAL STIFFNESS [None]
  - OEDEMA PERIPHERAL [None]
  - RHINORRHOEA [None]
  - SYNOVITIS [None]
  - TENDON RUPTURE [None]
